FAERS Safety Report 14938206 (Version 2)
Quarter: 2018Q2

REPORT INFORMATION
  Report Type: Report from Study
  Country: VE (occurrence: VE)
  Receive Date: 20180525
  Receipt Date: 20180608
  Transmission Date: 20180711
  Serious: Yes (Hospitalization, Other)
  Sender: FDA-Public Use
  Company Number: PHHY2018VE005928

PATIENT
  Sex: Female
  Weight: 60 kg

DRUGS (1)
  1. SANDOSTATIN LAR DEPOT [Suspect]
     Active Substance: OCTREOTIDE ACETATE
     Indication: NEUROENDOCRINE TUMOUR
     Dosage: 40 MG, QMO
     Route: 065
     Dates: start: 2011

REACTIONS (4)
  - Anxiety [Unknown]
  - Gallbladder disorder [Recovering/Resolving]
  - Intestinal obstruction [Recovered/Resolved]
  - Cholecystitis infective [Recovering/Resolving]
